FAERS Safety Report 21888006 (Version 2)
Quarter: 2023Q1

REPORT INFORMATION
  Report Type: Spontaneous
  Country: DK (occurrence: DK)
  Receive Date: 20230120
  Receipt Date: 20230208
  Transmission Date: 20230417
  Serious: Yes (Other)
  Sender: FDA-Public Use
  Company Number: None

PATIENT
  Age: 72 Year
  Sex: Female

DRUGS (3)
  1. YERVOY [Suspect]
     Active Substance: IPILIMUMAB
     Indication: Renal cancer
     Dosage: DOSAGE: 1 MG/KG/MONTH, STRENGTH: 5 MG/ML
     Route: 042
     Dates: start: 20220721, end: 20220901
  2. OPDIVO [Suspect]
     Active Substance: NIVOLUMAB
     Indication: Renal cancer
     Dosage: DOSAGE: 3 MG/KG/MONTH, STRENGTH: UNKNOWN
     Route: 042
     Dates: start: 20220721, end: 20220901
  3. CABOMETYX [Suspect]
     Active Substance: CABOZANTINIB S-MALATE
     Indication: Renal cancer
     Dosage: STRENGTH: 20 MG
     Route: 048
     Dates: start: 20221028, end: 20221123

REACTIONS (2)
  - Osteonecrosis of jaw [Not Recovered/Not Resolved]
  - Off label use [Unknown]

NARRATIVE: CASE EVENT DATE: 20221101
